FAERS Safety Report 7668508-3 (Version None)
Quarter: 2011Q3

REPORT INFORMATION
  Report Type: 
  Country: None (occurrence: None)
  Receive Date: 20110808
  Receipt Date: 20110803
  Transmission Date: 20111222
  Serious: Yes (Other)
  Sender: FDA-Public Use
  Company Number: CHPA2011US10363

PATIENT
  Age: 79 Year
  Sex: Female
  Weight: 35.374 kg

DRUGS (3)
  1. GAS-X EXTRA STRENGTH SOFTGELS [Suspect]
     Indication: FLATULENCE
     Dosage: 3 OR 4 SOFTGELS A DAY AS NEEDED
     Route: 048
  2. BEANO [Concomitant]
     Indication: PROPHYLAXIS
     Dosage: 2 OR 3  PILLS BEFORE DINNER
     Route: 048
     Dates: start: 20100101
  3. MAALOX ANTACID/ANTIGAS MAX QDTABS ASST [Suspect]
     Indication: GASTROOESOPHAGEAL REFLUX DISEASE
     Dosage: 1 OR 1.5 TABS PRN
     Route: 048

REACTIONS (8)
  - DRUG INEFFECTIVE [None]
  - PRURITUS [None]
  - LIMB OPERATION [None]
  - CONDITION AGGRAVATED [None]
  - PAIN IN EXTREMITY [None]
  - DRY SKIN [None]
  - FLATULENCE [None]
  - DRUG ADMINISTRATION ERROR [None]
